FAERS Safety Report 7334902-3 (Version None)
Quarter: 2011Q1

REPORT INFORMATION
  Report Type: 
  Country: None (occurrence: None)
  Receive Date: 20110302
  Receipt Date: 20110302
  Transmission Date: 20110831
  Serious: No
  Sender: FDA-Public Use
  Company Number: None

PATIENT
  Sex: Female

DRUGS (1)
  1. VICODIN [Suspect]
     Indication: PAIN
     Dosage: GENERIC VICODIN 5/500 Q.I.D ORAL MONTHLY
     Route: 048

REACTIONS (3)
  - RASH [None]
  - PRODUCT SUBSTITUTION ISSUE [None]
  - PHARYNGEAL OEDEMA [None]
